FAERS Safety Report 9097995 (Version 1)
Quarter: 2013Q1

REPORT INFORMATION
  Report Type: Report from Study
  Country: US (occurrence: US)
  Receive Date: 20130212
  Receipt Date: 20130212
  Transmission Date: 20140127
  Serious: Yes (Other)
  Sender: FDA-Public Use
  Company Number: US-JNJFOC-20130200295

PATIENT
  Age: 18 None
  Sex: Female

DRUGS (2)
  1. INVEGA SUSTENNA [Suspect]
     Indication: SCHIZOPHRENIA, PARANOID TYPE
     Route: 030
  2. BIRTH CONTROL PILLS, NOS [Concomitant]
     Route: 065

REACTIONS (3)
  - Depression [Not Recovered/Not Resolved]
  - Galactorrhoea [Recovered/Resolved]
  - Inappropriate schedule of drug administration [Recovered/Resolved]
